FAERS Safety Report 9643466 (Version 5)
Quarter: 2014Q2

REPORT INFORMATION
  Report Type: Report from Study
  Country: FR (occurrence: FR)
  Receive Date: 20131024
  Receipt Date: 20140613
  Transmission Date: 20141212
  Serious: Yes (Hospitalization)
  Sender: FDA-Public Use
  Company Number: FR-JNJFOC-20131010931

PATIENT
  Age: 28 Year
  Sex: Female
  Weight: 56 kg

DRUGS (8)
  1. REMICADE [Suspect]
     Indication: COLITIS ULCERATIVE
     Route: 042
     Dates: start: 20081107
  2. REMICADE [Suspect]
     Indication: COLITIS ULCERATIVE
     Route: 042
     Dates: start: 20081126, end: 20081126
  3. SPASFON [Concomitant]
     Indication: PAIN
     Dosage: UNIT 6 CP
     Route: 048
     Dates: start: 20081114
  4. DAFALGAN [Concomitant]
     Indication: PYREXIA
     Route: 048
     Dates: start: 20081121
  5. AUGMENTIN [Concomitant]
     Indication: INFECTION
     Route: 048
     Dates: start: 20081121, end: 20081125
  6. CIPROFLOXACINE [Concomitant]
     Indication: INFECTION
     Route: 048
     Dates: start: 20111121, end: 20111124
  7. VOGALENE [Concomitant]
     Indication: NAUSEA
     Route: 048
     Dates: start: 20081114, end: 20081125
  8. TOPALGIC [Concomitant]
     Indication: PAIN
     Route: 048

REACTIONS (10)
  - Colitis ulcerative [Recovering/Resolving]
  - Weight decreased [Recovered/Resolved]
  - Thrombocytosis [Unknown]
  - Hypochromic anaemia [Unknown]
  - Aphthous stomatitis [Unknown]
  - Vomiting [Unknown]
  - Tachycardia [Unknown]
  - Tachypnoea [Unknown]
  - Anxiety [Unknown]
  - Infusion related reaction [Unknown]
